FAERS Safety Report 6249152-1 (Version None)
Quarter: 2009Q2

REPORT INFORMATION
  Report Type: 
  Country: None (occurrence: None)
  Receive Date: 20090629
  Receipt Date: 20090617
  Transmission Date: 20091009
  Serious: Yes (Death, Hospitalization)
  Sender: FDA-Public Use
  Company Number: PFIZER INC-2007107011

PATIENT
  Sex: Male
  Weight: 68.86 kg

DRUGS (14)
  1. MARAVIROC [Suspect]
     Indication: ACQUIRED IMMUNODEFICIENCY SYNDROME
     Dosage: 300 MG, 2X/DAY
     Route: 048
     Dates: start: 20071002, end: 20071221
  2. NORVIR [Concomitant]
     Route: 048
     Dates: start: 20071016
  3. OXYCONTIN [Concomitant]
     Route: 048
     Dates: start: 20060220
  4. AMBIEN [Concomitant]
     Route: 048
     Dates: start: 20070713
  5. BECONASE [Concomitant]
     Route: 055
     Dates: start: 19950101
  6. LORTAB [Concomitant]
     Route: 048
     Dates: start: 20060220
  7. MULTI-VITAMINS [Concomitant]
     Route: 048
     Dates: start: 20060220
  8. LABETALOL HCL [Concomitant]
     Route: 048
     Dates: start: 20070713
  9. CYMBALTA [Concomitant]
     Route: 048
     Dates: start: 20070810
  10. ALL OTHER THERAPEUTIC PRODUCTS [Concomitant]
     Route: 048
     Dates: start: 19990101
  11. TIPRANAVIR [Concomitant]
     Route: 048
     Dates: start: 20071002
  12. ZIAGEN [Concomitant]
     Route: 048
     Dates: start: 20060220
  13. SONATA [Concomitant]
     Route: 048
     Dates: start: 20070914
  14. ZERIT [Concomitant]
     Route: 048
     Dates: start: 20060220

REACTIONS (3)
  - CHEST PAIN [None]
  - RENAL FAILURE ACUTE [None]
  - SEPSIS [None]
